FAERS Safety Report 11852678 (Version 1)
Quarter: 2015Q4

REPORT INFORMATION
  Report Type: Spontaneous
  Country: TR (occurrence: TR)
  Receive Date: 20151218
  Receipt Date: 20151218
  Transmission Date: 20160305
  Serious: Yes (Other)
  Sender: FDA-Public Use
  Company Number: TR-BAXTER-2015BAX067880

PATIENT
  Age: 53 Year
  Sex: Female

DRUGS (1)
  1. ENDOXAN 50 MG. DRAJE [Suspect]
     Active Substance: CYCLOPHOSPHAMIDE
     Indication: RHEUMATOID SCLERITIS
     Dosage: CUMULATIVE DOSE OVER 250 GRAM
     Route: 048
     Dates: start: 2000

REACTIONS (2)
  - Cytopenia [Recovering/Resolving]
  - Accidental overdose [Recovered/Resolved]
